FAERS Safety Report 24571644 (Version 1)
Quarter: 2024Q4

REPORT INFORMATION
  Report Type: Spontaneous
  Country: US (occurrence: None)
  Receive Date: 20241031
  Receipt Date: 20241031
  Transmission Date: 20250114
  Serious: No
  Sender: Public
  Company Number: None

PATIENT
  Age: 61 Year
  Sex: Female
  Weight: 73.8 kg

DRUGS (6)
  1. DUPIXENT [Suspect]
     Active Substance: DUPILUMAB
     Indication: Eosinophilic oesophagitis
     Dosage: 1 INJECTION ONCE A WEEK SUBCUTANEOUS
     Route: 058
     Dates: start: 20241003, end: 20241017
  2. PRAVASTATIN [Concomitant]
     Active Substance: PRAVASTATIN
  3. PEPCID [Concomitant]
     Active Substance: FAMOTIDINE
  4. Women^s multivitamin [Concomitant]
  5. ASPIRIN [Concomitant]
     Active Substance: ASPIRIN
  6. CALCIUM [Concomitant]
     Active Substance: CALCIUM

REACTIONS (2)
  - Arthralgia [None]
  - Back pain [None]

NARRATIVE: CASE EVENT DATE: 20241024
